FAERS Safety Report 9916150 (Version 2)
Quarter: 2014Q1

REPORT INFORMATION
  Report Type: Spontaneous
  Country: JP (occurrence: None)
  Receive Date: 20140219
  Receipt Date: 20140306
  Transmission Date: 20141002
  Serious: Yes (Hospitalization, Other)
  Sender: FDA-Public Use
  Company Number: ADR-2014-00252

PATIENT
  Age: 75 Year
  Sex: Female

DRUGS (1)
  1. GABALON INTRATHECAL [Suspect]
     Dosage: INTRATHECAL.

REACTIONS (4)
  - Pneumonia [None]
  - Asthenia [None]
  - Bedridden [None]
  - Infection susceptibility increased [None]
